FAERS Safety Report 6129179-0 (Version None)
Quarter: 2009Q1

REPORT INFORMATION
  Report Type: 
  Country: None (occurrence: None)
  Receive Date: 20090324
  Receipt Date: 20090316
  Transmission Date: 20090719
  Serious: Yes (Other)
  Sender: FDA-Public Use
  Company Number: AR-BAYER-200913605LA

PATIENT
  Age: 43 Year
  Sex: Female

DRUGS (1)
  1. MIRENA [Suspect]
     Indication: CONTRACEPTION
     Dosage: FREQ: CONT
     Route: 015
     Dates: start: 20041217, end: 20080121

REACTIONS (4)
  - ABDOMINAL DISCOMFORT [None]
  - HAEMANGIOMA OF LIVER [None]
  - VOMITING [None]
  - WEIGHT INCREASED [None]
